FAERS Safety Report 8230924-9 (Version None)
Quarter: 2012Q1

REPORT INFORMATION
  Report Type: 
  Country: None (occurrence: None)
  Receive Date: 20120320
  Receipt Date: 20120302
  Transmission Date: 20120608
  Serious: Yes (Other)
  Sender: FDA-Public Use
  Company Number: JPI-P-020236

PATIENT
  Age: 36 Year
  Sex: Female

DRUGS (1)
  1. XYREM [Suspect]
     Indication: INSOMNIA
     Dosage: , ORAL, 9 GM (4.5 GM,2 IN 1 D),ORAL
     Route: 048
     Dates: start: 20100308

REACTIONS (18)
  - NAUSEA [None]
  - MUSCULOSKELETAL DISCOMFORT [None]
  - ANXIETY [None]
  - FLUID INTAKE REDUCED [None]
  - HEADACHE [None]
  - MENTAL IMPAIRMENT [None]
  - URINE ODOUR ABNORMAL [None]
  - SOMNOLENCE [None]
  - FLATULENCE [None]
  - DECREASED APPETITE [None]
  - DRY MOUTH [None]
  - NERVOUSNESS [None]
  - URINARY TRACT INFECTION [None]
  - DIZZINESS [None]
  - FATIGUE [None]
  - ABDOMINAL PAIN UPPER [None]
  - PAIN [None]
  - UTERINE DISORDER [None]
